FAERS Safety Report 12576554 (Version 2)
Quarter: 2016Q4

REPORT INFORMATION
  Report Type: Spontaneous
  Country: US (occurrence: US)
  Receive Date: 20160720
  Receipt Date: 20161019
  Transmission Date: 20170207
  Serious: No
  Sender: FDA-Public Use
  Company Number: US-OTSUKA-2016_008184

PATIENT
  Sex: Female

DRUGS (2)
  1. REXULTI [Suspect]
     Active Substance: BREXPIPRAZOLE
     Indication: BIPOLAR DISORDER
     Dosage: 2 MG, QD
     Route: 065
     Dates: start: 201603, end: 201604
  2. REXULTI [Suspect]
     Active Substance: BREXPIPRAZOLE
     Dosage: 2 MG, QD
     Route: 065
     Dates: start: 2016

REACTIONS (5)
  - Headache [Not Recovered/Not Resolved]
  - Myalgia [Not Recovered/Not Resolved]
  - Weight increased [Not Recovered/Not Resolved]
  - Off label use [Unknown]
  - Gait disturbance [Not Recovered/Not Resolved]
